FAERS Safety Report 11073903 (Version 2)
Quarter: 2015Q2

REPORT INFORMATION
  Report Type: Spontaneous
  Country: UA (occurrence: UA)
  Receive Date: 20150429
  Receipt Date: 20150526
  Transmission Date: 20150821
  Serious: Yes (Death, Hospitalization)
  Sender: FDA-Public Use
  Company Number: UA-ROCHE-1569877

PATIENT
  Age: 35 Year
  Sex: Male

DRUGS (3)
  1. VICTRELIS [Suspect]
     Active Substance: BOCEPREVIR
     Indication: CHRONIC HEPATITIS C
     Route: 065
     Dates: end: 20150422
  2. PEGASYS [Suspect]
     Active Substance: PEGINTERFERON ALFA-2A
     Indication: CHRONIC HEPATITIS C
     Dosage: 180 MCG/PER WEEK/10 WEEKS
     Route: 058
     Dates: end: 20150422
  3. COPEGUS [Suspect]
     Active Substance: RIBAVIRIN
     Indication: CHRONIC HEPATITIS C
     Dosage: 6 TABS X 200MG/PER DAY/10 WEEKS
     Route: 048
     Dates: end: 20150422

REACTIONS (3)
  - Neutropenia [Unknown]
  - Neutropenic sepsis [Fatal]
  - Leukopenia [Unknown]
